FAERS Safety Report 12604525 (Version 2)
Quarter: 2016Q3

REPORT INFORMATION
  Report Type: Report from Study
  Country: US (occurrence: US)
  Receive Date: 20160728
  Receipt Date: 20160830
  Transmission Date: 20161109
  Serious: Yes (Death, Hospitalization)
  Sender: FDA-Public Use
  Company Number: US-PFIZER INC-2016334457

PATIENT
  Age: 61 Year
  Sex: Male
  Weight: 67.36 kg

DRUGS (15)
  1. FAMOTIDINE. [Concomitant]
     Active Substance: FAMOTIDINE
  2. ZOLPIDEM [Concomitant]
     Active Substance: ZOLPIDEM\ZOLPIDEM TARTRATE
  3. PALBOCICLIB [Suspect]
     Active Substance: PALBOCICLIB
     Indication: SQUAMOUS CELL CARCINOMA OF HEAD AND NECK
     Dosage: 125 MG, CYCLIC (DAY 1-21 OF 28 DAYS)
     Route: 048
     Dates: start: 20160114, end: 20160703
  4. OXYCODONE [Concomitant]
     Active Substance: OXYCODONE
  5. PREDNISONE. [Concomitant]
     Active Substance: PREDNISONE
  6. HYDROCODONE-ACETAMINOPHEN [Concomitant]
     Active Substance: ACETAMINOPHEN\HYDROCODONE
  7. TAMSULOSIN [Concomitant]
     Active Substance: TAMSULOSIN
  8. BUPROPION. [Concomitant]
     Active Substance: BUPROPION
  9. CEVIMELINE. [Concomitant]
     Active Substance: CEVIMELINE
  10. LYRICA [Concomitant]
     Active Substance: PREGABALIN
  11. MINOCYCLINE [Concomitant]
     Active Substance: MINOCYCLINE\MINOCYCLINE HYDROCHLORIDE
  12. CETUXIMAB [Suspect]
     Active Substance: CETUXIMAB
     Indication: SQUAMOUS CELL CARCINOMA OF HEAD AND NECK
     Dosage: 250 MG/M2, WEEKLY
     Route: 042
     Dates: start: 20160114, end: 20160628
  13. FENTANYL. [Concomitant]
     Active Substance: FENTANYL
  14. FOSAMAX [Concomitant]
     Active Substance: ALENDRONATE SODIUM
  15. SULFAMETHOXAZOLE AND TRIMETHOPRIM [Concomitant]
     Active Substance: SULFAMETHOXAZOLE\TRIMETHOPRIM

REACTIONS (4)
  - Hip fracture [Not Recovered/Not Resolved]
  - Fall [Recovered/Resolved with Sequelae]
  - Atrial fibrillation [Recovered/Resolved]
  - Respiratory failure [Fatal]

NARRATIVE: CASE EVENT DATE: 20160704
